FAERS Safety Report 5766143-5 (Version None)
Quarter: 2008Q2

REPORT INFORMATION
  Report Type: 
  Country: None (occurrence: None)
  Receive Date: 20080611
  Receipt Date: 20080602
  Transmission Date: 20081010
  Serious: Yes (Other)
  Sender: FDA-Public Use
  Company Number: GB-ABBOTT-08P-167-0454851-00

PATIENT
  Age: 52 Year
  Sex: Female
  Weight: 62 kg

DRUGS (6)
  1. HUMIRA [Suspect]
     Indication: RHEUMATOID ARTHRITIS
     Dates: start: 20060515, end: 20060712
  2. METHOTREXATE [Concomitant]
     Indication: RHEUMATOID ARTHRITIS
  3. FOLIC ACID [Concomitant]
     Indication: RHEUMATOID ARTHRITIS
  4. CIPROFLOXACIN HCL [Concomitant]
     Indication: CHEST PAIN
     Dates: start: 20060708, end: 20060712
  5. TRAMADOL HCL [Concomitant]
     Indication: RHEUMATOID ARTHRITIS
  6. LANSOPRAZOLE [Concomitant]
     Indication: DYSPEPSIA

REACTIONS (2)
  - PERICARDIAL EFFUSION [None]
  - SEROSITIS [None]
